FAERS Safety Report 5258663-7 (Version None)
Quarter: 2007Q1

REPORT INFORMATION
  Report Type: 
  Country: None (occurrence: None)
  Receive Date: 20070306
  Receipt Date: 20070306
  Transmission Date: 20070707
  Serious: Yes (Life-Threatening)
  Sender: FDA-Public Use
  Company Number: None

PATIENT
  Sex: Male
  Weight: 83.9154 kg

DRUGS (1)
  1. AMOXICILLIN + CLAVULANATE POTASSIUM [Suspect]
     Indication: PHARYNGITIS STREPTOCOCCAL
     Dosage: 20 TABS 2 A DAY/10 DAYS MOUTH
     Route: 048
     Dates: start: 20070129, end: 20070207

REACTIONS (3)
  - APATHY [None]
  - ASTHENIA [None]
  - DRUG INEFFECTIVE [None]
